FAERS Safety Report 7791514-5 (Version None)
Quarter: 2011Q4

REPORT INFORMATION
  Report Type: 
  Country: None (occurrence: None)
  Receive Date: 20111003
  Receipt Date: 20110921
  Transmission Date: 20120403
  Serious: Yes (Other)
  Sender: FDA-Public Use
  Company Number: US-BAYER-2011-089431

PATIENT
  Sex: Female

DRUGS (1)
  1. YAZ [Suspect]

REACTIONS (2)
  - MIGRAINE WITH AURA [None]
  - BLINDNESS [None]
